FAERS Safety Report 20031302 (Version 1)
Quarter: 2021Q4

REPORT INFORMATION
  Report Type: Spontaneous
  Country: US (occurrence: US)
  Receive Date: 20211103
  Receipt Date: 20211103
  Transmission Date: 20220303
  Serious: No
  Sender: FDA-Public Use
  Company Number: US-ALLERGAN-2040483US

PATIENT
  Sex: Female

DRUGS (3)
  1. VRAYLAR [Suspect]
     Active Substance: CARIPRAZINE
     Indication: Paranoia
     Dosage: 3 MG, QOD
     Route: 065
     Dates: start: 20201019
  2. VRAYLAR [Suspect]
     Active Substance: CARIPRAZINE
     Indication: Mood swings
     Dosage: 1.5 MG, QOD
     Route: 065
  3. VRAYLAR [Suspect]
     Active Substance: CARIPRAZINE
     Dosage: 1.5 MG EVERY 5 DAYS
     Route: 065

REACTIONS (2)
  - Off label use [Unknown]
  - Drug ineffective [Unknown]
